FAERS Safety Report 25860447 (Version 1)
Quarter: 2025Q3

REPORT INFORMATION
  Report Type: Spontaneous
  Country: US (occurrence: US)
  Receive Date: 20250929
  Receipt Date: 20250929
  Transmission Date: 20251021
  Serious: No
  Sender: PFIZER
  Company Number: US-PFIZER INC-2020216882

PATIENT
  Age: 54 Year
  Sex: Female
  Weight: 57.61 kg

DRUGS (1)
  1. ELELYSO [Suspect]
     Active Substance: TALIGLUCERASE ALFA
     Indication: Gaucher^s disease
     Dates: start: 2015

REACTIONS (3)
  - Off label use [Unknown]
  - Intentional product use issue [Unknown]
  - Wound [Unknown]
